FAERS Safety Report 4783136-5 (Version None)
Quarter: 2005Q3

REPORT INFORMATION
  Report Type: 
  Country: None (occurrence: None)
  Receive Date: 20050928
  Receipt Date: 20050928
  Transmission Date: 20060218
  Serious: No
  Sender: FDA-Public Use
  Company Number: None

PATIENT
  Age: 41 Year
  Sex: Female
  Weight: 51.2565 kg

DRUGS (2)
  1. ZITHROMAX [Suspect]
     Indication: COUGH
     Dosage: ONE PILL / DAY X 3 DAYS
     Dates: start: 20050918, end: 20050920
  2. ZITHROMAX [Suspect]
     Indication: NASOPHARYNGITIS
     Dosage: ONE PILL / DAY X 3 DAYS
     Dates: start: 20050918, end: 20050920

REACTIONS (7)
  - BACK PAIN [None]
  - CHILLS [None]
  - GLUCOSE URINE PRESENT [None]
  - POLLAKIURIA [None]
  - POLYDIPSIA [None]
  - PYREXIA [None]
  - URINE KETONE BODY PRESENT [None]
